FAERS Safety Report 16042885 (Version 1)
Quarter: 2019Q2

REPORT INFORMATION
  Report Type: Spontaneous
  Country: US (occurrence: US)
  Receive Date: 20190306
  Receipt Date: 20190306
  Transmission Date: 20190711
  Serious: Yes (Other)
  Sender: FDA-Public Use
  Company Number: None

PATIENT
  Age: 40 Year
  Sex: Female
  Weight: 67.5 kg

DRUGS (15)
  1. DOXEPIN [Concomitant]
     Active Substance: DOXEPIN
  2. LEVOTHYROXINE. [Concomitant]
     Active Substance: LEVOTHYROXINE
  3. NASOCORT [Concomitant]
     Active Substance: BUDESONIDE
  4. MONTELUKAST [Concomitant]
     Active Substance: MONTELUKAST SODIUM
  5. BENADRYL [Concomitant]
     Active Substance: DIPHENHYDRAMINE HYDROCHLORIDE
  6. SPIRONOLACTONE. [Concomitant]
     Active Substance: SPIRONOLACTONE
  7. TYLENOL [Concomitant]
     Active Substance: ACETAMINOPHEN
  8. CBD EDIBLE [Concomitant]
  9. REMERON [Suspect]
     Active Substance: MIRTAZAPINE
     Indication: PERINATAL DEPRESSION
     Route: 048
  10. OMEPRAZOLE. [Concomitant]
     Active Substance: OMEPRAZOLE
  11. MELATONIN [Concomitant]
     Active Substance: MELATONIN
  12. REMERON [Suspect]
     Active Substance: MIRTAZAPINE
     Indication: ANXIETY
     Route: 048
  13. ALBUTEROL. [Concomitant]
     Active Substance: ALBUTEROL
  14. CLONAZEPAM. [Concomitant]
     Active Substance: CLONAZEPAM
  15. SYMBICORT [Concomitant]
     Active Substance: BUDESONIDE\FORMOTEROL FUMARATE DIHYDRATE

REACTIONS (3)
  - Panic reaction [None]
  - Suicidal ideation [None]
  - Obsessive-compulsive disorder [None]

NARRATIVE: CASE EVENT DATE: 20111105
